FAERS Safety Report 5252814-6 (Version None)
Quarter: 2007Q1

REPORT INFORMATION
  Report Type: 
  Country: None (occurrence: None)
  Receive Date: 20070301
  Receipt Date: 20061207
  Transmission Date: 20070707
  Serious: Yes (Life-Threatening, Hospitalization, Other)
  Sender: FDA-Public Use
  Company Number: US-GLAXOSMITHKLINE-A0630820A

PATIENT
  Age: 50 Year
  Sex: Female

DRUGS (6)
  1. LAMICTAL [Suspect]
     Dosage: 200MG TWICE PER DAY
     Route: 048
     Dates: start: 20060531, end: 20061205
  2. LEXAPRO [Concomitant]
  3. VALIUM [Concomitant]
  4. IMITREX [Concomitant]
  5. TEGRETOL [Concomitant]
     Dates: end: 20060701
  6. SPIRONOLACTONE [Concomitant]
     Dates: end: 20061001

REACTIONS (3)
  - LEUKOPENIA [None]
  - PANCYTOPENIA [None]
  - THROMBOCYTOPENIA [None]
